FAERS Safety Report 5503153-7 (Version None)
Quarter: 2007Q4

REPORT INFORMATION
  Report Type: 
  Country: None (occurrence: None)
  Receive Date: 20071029
  Receipt Date: 20071029
  Transmission Date: 20080405
  Serious: Yes (Hospitalization)
  Sender: FDA-Public Use
  Company Number: None

PATIENT
  Sex: Female
  Weight: 52.7 kg

DRUGS (4)
  1. FLUOROURACIL [Suspect]
     Dosage: 4200 MG
     Dates: end: 20071012
  2. BEVACIZUMAB (RHUMAB VEGF) [Suspect]
     Dosage: 264 MG
     Dates: end: 20071010
  3. LEUCOVORIN CALCIUM [Suspect]
     Dosage: 600 MG
     Dates: end: 20071010
  4. ELOXATIN [Suspect]
     Dosage: 128 MG
     Dates: end: 20071010

REACTIONS (3)
  - INTESTINAL OBSTRUCTION [None]
  - ORAL INTAKE REDUCED [None]
  - THIRST [None]
